FAERS Safety Report 5097843-0 (Version None)
Quarter: 2006Q3

REPORT INFORMATION
  Report Type: 
  Country: None (occurrence: None)
  Receive Date: 20060905
  Receipt Date: 20060824
  Transmission Date: 20061208
  Serious: Yes (Hospitalization)
  Sender: FDA-Public Use
  Company Number: 2006-143769-NL

PATIENT
  Age: 78 Year
  Sex: Female

DRUGS (7)
  1. MIRTAZAPINE [Suspect]
     Indication: DEPRESSION
     Dosage: 15 MG ORAL
     Route: 048
     Dates: start: 20060228
  2. OLANZAPINE [Suspect]
     Indication: DEPRESSION
     Dosage: DF/10 MG ORAL
     Route: 048
     Dates: start: 20060314, end: 20060321
  3. OLANZAPINE [Suspect]
     Indication: DEPRESSION
     Dosage: DF/10 MG ORAL
     Route: 048
     Dates: start: 20060322
  4. SERTRALINE [Suspect]
     Dosage: 75 MG/DF ORAL
     Route: 048
  5. RIVASTIGMINE TARTRATE [Concomitant]
  6. ASPIRIN [Concomitant]
  7. SENNOSIDE A+B CALCIUM [Concomitant]

REACTIONS (5)
  - DRUG INTERACTION [None]
  - DRUG LEVEL INCREASED [None]
  - FALL [None]
  - FEMORAL NECK FRACTURE [None]
  - SEDATION [None]
